FAERS Safety Report 21355872 (Version 6)
Quarter: 2023Q2

REPORT INFORMATION
  Report Type: Spontaneous
  Country: US (occurrence: US)
  Receive Date: 20220920
  Receipt Date: 20230502
  Transmission Date: 20230721
  Serious: No
  Sender: FDA-Public Use
  Company Number: US-BIOGEN-2022BI01145716

PATIENT
  Age: 58 Year
  Sex: Female

DRUGS (1)
  1. TECFIDERA [Suspect]
     Active Substance: DIMETHYL FUMARATE
     Indication: Multiple sclerosis
     Route: 050
     Dates: start: 202004

REACTIONS (19)
  - Product dose omission issue [Unknown]
  - Product dose omission in error [Unknown]
  - Musculoskeletal chest pain [Not Recovered/Not Resolved]
  - Peroneal nerve palsy [Unknown]
  - Paraesthesia [Unknown]
  - Limb discomfort [Unknown]
  - Pain [Unknown]
  - Back pain [Unknown]
  - Stress [Unknown]
  - Insomnia [Unknown]
  - Chest injury [Unknown]
  - Vision blurred [Unknown]
  - Fall [Recovered/Resolved]
  - Abdominal discomfort [Unknown]
  - Weight increased [Unknown]
  - Constipation [Unknown]
  - Nausea [Unknown]
  - Dyspepsia [Unknown]
  - Alopecia [Unknown]

NARRATIVE: CASE EVENT DATE: 20220805
